FAERS Safety Report 8329723-9 (Version None)
Quarter: 2012Q2

REPORT INFORMATION
  Report Type: 
  Country: None (occurrence: None)
  Receive Date: 20120502
  Receipt Date: 20120427
  Transmission Date: 20120825
  Serious: Yes (Other)
  Sender: FDA-Public Use
  Company Number: JP-GLAXOSMITHKLINE-B0798866A

PATIENT
  Age: 36 Year
  Sex: Female

DRUGS (3)
  1. LAMICTAL [Suspect]
     Indication: BIPOLAR DISORDER
     Dosage: 50MG PER DAY
     Route: 048
     Dates: start: 20110914, end: 20120418
  2. AMOXAPINE [Concomitant]
     Indication: BIPOLAR DISORDER
     Dosage: 150MG PER DAY
     Route: 048
  3. HALCION [Concomitant]
     Indication: INSOMNIA
     Route: 048

REACTIONS (6)
  - STEVENS-JOHNSON SYNDROME [None]
  - PAIN [None]
  - STOMATITIS [None]
  - ORAL HERPES [None]
  - PYREXIA [None]
  - APHTHOUS STOMATITIS [None]
